FAERS Safety Report 5850628-7 (Version None)
Quarter: 2008Q3

REPORT INFORMATION
  Report Type: 
  Country: None (occurrence: None)
  Receive Date: 20080818
  Receipt Date: 20080806
  Transmission Date: 20090109
  Serious: Yes (Hospitalization)
  Sender: FDA-Public Use
  Company Number: 2006BI013598

PATIENT
  Age: 42 Year
  Sex: Male
  Weight: 76.2043 kg

DRUGS (2)
  1. AVONEX [Suspect]
     Indication: MULTIPLE SCLEROSIS
     Dosage: 30 UG; QW; IM
     Route: 030
     Dates: start: 19980501, end: 20030801
  2. AVONEX [Suspect]
     Indication: MULTIPLE SCLEROSIS
     Dosage: 30 UG; QW; IM
     Route: 030
     Dates: start: 20030801, end: 20061212

REACTIONS (9)
  - BACK PAIN [None]
  - BALANCE DISORDER [None]
  - BLOOD COUNT ABNORMAL [None]
  - FALL [None]
  - GAIT DISTURBANCE [None]
  - IMMUNE SYSTEM DISORDER [None]
  - PULMONARY EMBOLISM [None]
  - PULMONARY THROMBOSIS [None]
  - THORACIC VERTEBRAL FRACTURE [None]
